FAERS Safety Report 20212741 (Version 1)
Quarter: 2021Q4

REPORT INFORMATION
  Report Type: Spontaneous
  Country: US (occurrence: US)
  Receive Date: 20211221
  Receipt Date: 20211221
  Transmission Date: 20220303
  Serious: Yes (Other)
  Sender: FDA-Public Use
  Company Number: PT-BAYER-2021A261838

PATIENT
  Age: 39 Year
  Sex: Male

DRUGS (14)
  1. ASPIRIN [Suspect]
     Active Substance: ASPIRIN
     Indication: Retinal artery occlusion
  2. ASPIRIN [Suspect]
     Active Substance: ASPIRIN
     Indication: Susac^s syndrome
  3. METHYLPREDNISOLONE [Concomitant]
     Active Substance: METHYLPREDNISOLONE
     Indication: Retinal artery occlusion
     Route: 042
  4. METHYLPREDNISOLONE [Concomitant]
     Active Substance: METHYLPREDNISOLONE
     Indication: Susac^s syndrome
  5. PREDNISONE [Concomitant]
     Active Substance: PREDNISONE
     Indication: Retinal artery occlusion
     Route: 048
  6. PREDNISONE [Concomitant]
     Active Substance: PREDNISONE
     Indication: Susac^s syndrome
  7. IMMUNE GLOBULIN NOS [Concomitant]
     Active Substance: IMMUNE GLOBULIN NOS
     Indication: Retinal artery occlusion
     Dosage: UNK (EVERY 2 TO 3 WEEKS)
  8. IMMUNE GLOBULIN NOS [Concomitant]
     Active Substance: IMMUNE GLOBULIN NOS
     Indication: Susac^s syndrome
  9. MYCOPHENOLATE MOFETIL [Concomitant]
     Active Substance: MYCOPHENOLATE MOFETIL
     Indication: Retinal artery occlusion
  10. MYCOPHENOLATE MOFETIL [Concomitant]
     Active Substance: MYCOPHENOLATE MOFETIL
     Indication: Susac^s syndrome
  11. CYCLOPHOSPHAMIDE [Concomitant]
     Active Substance: CYCLOPHOSPHAMIDE
     Indication: Retinal artery occlusion
     Dosage: 1 DF, ONCE
     Route: 042
  12. CYCLOPHOSPHAMIDE [Concomitant]
     Active Substance: CYCLOPHOSPHAMIDE
     Indication: Susac^s syndrome
  13. RITUXIMAB [Concomitant]
     Active Substance: RITUXIMAB
     Indication: Retinal artery occlusion
  14. RITUXIMAB [Concomitant]
     Active Substance: RITUXIMAB
     Indication: Susac^s syndrome

REACTIONS (3)
  - Haematuria [None]
  - Off label use [None]
  - Drug ineffective for unapproved indication [None]
